FAERS Safety Report 26191938 (Version 1)
Quarter: 2025Q4

REPORT INFORMATION
  Report Type: Report from Study
  Country: PH (occurrence: PH)
  Receive Date: 20251223
  Receipt Date: 20251223
  Transmission Date: 20260119
  Serious: Yes (Death)
  Sender: OTSUKA
  Company Number: PH-MMM-Otsuka-8YG20NX9

PATIENT

DRUGS (1)
  1. TOLVAPTAN [Suspect]
     Active Substance: TOLVAPTAN
     Indication: Renal failure
     Dosage: 1 DF, TIW (15 MG 1 TABLET EVERY MONDAY, WEDNESDAY, AND FRIDAY)
     Route: 061
     Dates: start: 2023, end: 20251006

REACTIONS (3)
  - Cardiorenal syndrome [Fatal]
  - Inappropriate schedule of product administration [Unknown]
  - Product use in unapproved indication [Unknown]

NARRATIVE: CASE EVENT DATE: 20230101
